FAERS Safety Report 4268677-1 (Version None)
Quarter: 2004Q1

REPORT INFORMATION
  Report Type: 
  Country: None (occurrence: None)
  Receive Date: 20040112
  Receipt Date: 20031030
  Transmission Date: 20041129
  Serious: Yes (Other)
  Sender: FDA-Public Use
  Company Number: FR-BRISTOL-MYERS SQUIBB COMPANY-12431912

PATIENT
  Age: 83 Year
  Sex: Female

DRUGS (2)
  1. APROVEL TABS 300 MG [Suspect]
     Indication: HYPERTENSION
     Dosage: IRBESARTAN WAS TEMPORARILY DISCONTINUED FOR ABOUT 10 DAYS; STOPPED 10-NOV-2003.
     Route: 048
     Dates: start: 20030601, end: 20031110
  2. TANGANIL [Concomitant]
     Route: 048
     Dates: start: 20030701, end: 20031018

REACTIONS (1)
  - HEPATITIS CHOLESTATIC [None]
